FAERS Safety Report 6790657-2 (Version None)
Quarter: 2010Q2

REPORT INFORMATION
  Report Type: 
  Country: None (occurrence: None)
  Receive Date: 20100520
  Receipt Date: 20090331
  Transmission Date: 20101027
  Serious: Yes (Other)
  Sender: FDA-Public Use
  Company Number: 2009191935

PATIENT
  Age: 64 Year
  Sex: Female

DRUGS (6)
  1. PROVERA [Suspect]
     Indication: HORMONE REPLACEMENT THERAPY
     Dosage: 2.5 MG, ORAL
     Route: 048
     Dates: start: 19920201, end: 19960201
  2. PROVERA [Suspect]
     Indication: MENOPAUSAL SYMPTOMS
     Dosage: 2.5 MG, ORAL
     Route: 048
     Dates: start: 19920201, end: 19960201
  3. PREMARIN [Suspect]
     Indication: HORMONE REPLACEMENT THERAPY
     Dosage: 0.625 MG
     Dates: start: 19920201, end: 19960201
  4. PREMARIN [Suspect]
     Indication: MENOPAUSAL SYMPTOMS
     Dosage: 0.625 MG
     Dates: start: 19920201, end: 19960201
  5. PREMPRO [Suspect]
     Indication: HORMONE REPLACEMENT THERAPY
     Dosage: 0.625/ 2.5MG
     Dates: start: 19960601, end: 20010201
  6. PREMPRO [Suspect]
     Indication: MENOPAUSAL SYMPTOMS
     Dosage: 0.625/ 2.5MG
     Dates: start: 19960601, end: 20010201

REACTIONS (1)
  - CEREBROVASCULAR ACCIDENT [None]
